FAERS Safety Report 4776311-7 (Version None)
Quarter: 2005Q3

REPORT INFORMATION
  Report Type: 
  Country: None (occurrence: None)
  Receive Date: 20050921
  Receipt Date: 20050908
  Transmission Date: 20060218
  Serious: Yes (Death)
  Sender: FDA-Public Use
  Company Number: HQWYE334709SEP05

PATIENT
  Age: 53 Year
  Sex: Female

DRUGS (6)
  1. PROPRANOLOL HCL [Suspect]
     Dosage: UNSPECIFIED AMOUNT OF 40 MG TABLETS ORAL
     Route: 048
     Dates: start: 20050531
  2. MEPRONIZINE (ACEPROMETAZINE/MEPROBAMATE, ) [Suspect]
     Dosage: UNSPECIFIED AMOUNT ORAL
     Route: 048
     Dates: start: 20050531
  3. ATARAX [Concomitant]
  4. EFFERALGAN (PARACETAMOL) [Concomitant]
  5. VALIUM (DIAZEAM) [Concomitant]
  6. LEXOMIL (BROMAZEPAM) [Concomitant]

REACTIONS (15)
  - BLOOD LACTIC ACID INCREASED [None]
  - BLOOD PRESSURE DECREASED [None]
  - BLOOD PRESSURE IMMEASURABLE [None]
  - BODY TEMPERATURE DECREASED [None]
  - BRADYCARDIA [None]
  - COMA [None]
  - COMPLETED SUICIDE [None]
  - DRUG SCREEN POSITIVE [None]
  - ELECTROCARDIOGRAM ABNORMAL [None]
  - INTENTIONAL MISUSE [None]
  - MULTIPLE DRUG OVERDOSE [None]
  - MYDRIASIS [None]
  - OXYGEN SATURATION DECREASED [None]
  - PUPILLARY REFLEX IMPAIRED [None]
  - SHOCK [None]
